FAERS Safety Report 6790530-X (Version None)
Quarter: 2010Q2

REPORT INFORMATION
  Report Type: 
  Country: None (occurrence: None)
  Receive Date: 20100624
  Receipt Date: 20100617
  Transmission Date: 20101027
  Serious: Yes (Hospitalization)
  Sender: FDA-Public Use
  Company Number: DE-ROCHE-710102

PATIENT
  Sex: Male
  Weight: 72 kg

DRUGS (7)
  1. BEVACIZUMAB [Suspect]
     Indication: COLORECTAL CANCER
     Dosage: DOSAGE: 370 MG.LAST  LAST DOSE PRIOR TO SAE: 25 MAY 2010
     Route: 042
     Dates: start: 20100330, end: 20100608
  2. OXALIPLATIN [Suspect]
     Indication: COLORECTAL CANCER
     Dosage: DOSAGE FORM: 161 MG, LAST DOSE PRIOR TO SAE:25 MAY 2010.
     Route: 042
     Dates: start: 20100330, end: 20100608
  3. IRINOTECAN [Suspect]
     Indication: COLORECTAL CANCER
     Dosage: DOSARE FORM: 131 MG. LAST DOSE PRIR TO SAE: 25 MAY 2010
     Route: 042
     Dates: start: 20100330, end: 20100608
  4. FOLINIC ACID [Suspect]
     Indication: COLORECTAL CANCER
     Dosage: LAST DOSE PRIOR TO SAE: 25 MAY 2010. DOSAGE:330 MG
     Route: 042
     Dates: start: 20100330, end: 20100608
  5. FLUOROURACIL [Suspect]
     Indication: COLORECTAL CANCER
     Dosage: DOSAGE FORM: 6080 MG, LAST DOSE PRIOR TO SAE: 25 MAY 2010
     Route: 042
     Dates: start: 20100330, end: 20100608
  6. ENALAGAMMA [Concomitant]
     Dosage: FREQUENCY: EVERY THIRD DAY.
     Dates: start: 20000101, end: 20100601
  7. ENALAGAMMA [Concomitant]
     Dates: start: 20100602, end: 20100607

REACTIONS (1)
  - TUBULOINTERSTITIAL NEPHRITIS [None]
